FAERS Safety Report 5906171-X (Version None)
Quarter: 2008Q4

REPORT INFORMATION
  Report Type: 
  Country: None (occurrence: None)
  Receive Date: 20081002
  Receipt Date: 20080922
  Transmission Date: 20090506
  Serious: Yes (Death, Hospitalization)
  Sender: FDA-Public Use
  Company Number: AU-AMGEN-US231574

PATIENT
  Sex: Male
  Weight: 67 kg

DRUGS (11)
  1. ARANESP [Suspect]
     Indication: RENAL FAILURE CHRONIC
     Route: 058
     Dates: start: 20040507, end: 20050112
  2. EPREX [Suspect]
     Route: 058
     Dates: start: 20051012
  3. NEXIUM [Concomitant]
     Route: 065
  4. ATORVASTATIN [Concomitant]
     Route: 065
  5. WARFARIN SODIUM [Concomitant]
     Route: 065
  6. IRBESARTAN [Concomitant]
     Route: 065
  7. ATENOLOL [Concomitant]
     Route: 065
  8. CALCITRIOL [Concomitant]
     Route: 065
  9. CYCLOSPORINE [Concomitant]
     Route: 065
  10. AZATHIOPRINE [Concomitant]
  11. PREDNISOLONE [Concomitant]

REACTIONS (7)
  - DIARRHOEA [None]
  - DISSEMINATED INTRAVASCULAR COAGULATION [None]
  - HAEMOGLOBIN DECREASED [None]
  - MULTI-ORGAN FAILURE [None]
  - PLEURAL EFFUSION [None]
  - PNEUMONIA [None]
  - SKIN LESION [None]
